FAERS Safety Report 18033995 (Version 1)
Quarter: 2020Q3

REPORT INFORMATION
  Report Type: Spontaneous
  Country: CN (occurrence: CN)
  Receive Date: 20200716
  Receipt Date: 20200716
  Transmission Date: 20201103
  Serious: Yes (Other)
  Sender: FDA-Public Use
  Company Number: CN-FRESENIUS KABI-FK202007202

PATIENT
  Age: 73 Year
  Sex: Female
  Weight: 67 kg

DRUGS (5)
  1. ALBUMIN HUMAN [Concomitant]
     Active Substance: ALBUMIN HUMAN
     Indication: PRODUCT USED FOR UNKNOWN INDICATION
     Dosage: UNKNOWN
     Route: 041
  2. LECITHIN/GLYCINE MAX SEED OIL [Suspect]
     Active Substance: LECITHIN\SOYBEAN OIL
     Indication: PARENTERAL NUTRITION
     Dosage: 250ML, QD
     Route: 041
     Dates: start: 20200703, end: 20200703
  3. DIPEPTIVEN [Suspect]
     Active Substance: ALANYL GLUTAMINE
     Indication: PARENTERAL NUTRITION
     Dosage: 100ML QD
     Route: 041
     Dates: start: 20200703, end: 20200703
  4. OMEGAVEN [Suspect]
     Active Substance: FISH OIL
     Indication: PARENTERAL NUTRITION
     Dosage: 100ML QD
     Route: 041
     Dates: start: 20200703, end: 20200703
  5. GLYCINE/ALANINE/SERINE/ASPARTIC ACID/LEUCINE/METHIONINE/PHENYLALANINE/ASPARAGINE/HISTIDINE/VALINE/TH [Suspect]
     Active Substance: AMINO ACIDS
     Indication: PARENTERAL NUTRITION
     Dosage: 500ML QD
     Route: 041
     Dates: start: 20200703, end: 20200703

REACTIONS (1)
  - Anaphylactic shock [Recovered/Resolved]

NARRATIVE: CASE EVENT DATE: 20200703
